FAERS Safety Report 8398950-7 (Version None)
Quarter: 2012Q1

REPORT INFORMATION
  Report Type: 
  Country: None (occurrence: None)
  Receive Date: 20120323
  Receipt Date: 20110105
  Transmission Date: 20120608
  Serious: Yes (Hospitalization)
  Sender: FDA-Public Use
  Company Number: 163-21880-11010498

PATIENT
  Age: 62 Year
  Sex: Female
  Weight: 65.9 kg

DRUGS (1)
  1. REVLIMID [Suspect]
     Indication: MYELODYSPLASTIC SYNDROME
     Dosage: 10 MG, PO
     Route: 048
     Dates: start: 20101203, end: 20101230

REACTIONS (1)
  - ANAEMIA [None]
